FAERS Safety Report 7331256-3 (Version None)
Quarter: 2011Q1

REPORT INFORMATION
  Report Type: 
  Country: None (occurrence: None)
  Receive Date: 20110304
  Receipt Date: 20110303
  Transmission Date: 20110831
  Serious: Yes (Other)
  Sender: FDA-Public Use
  Company Number: BR-PFIZER INC-2011037378

PATIENT
  Age: 54 Year
  Sex: Female
  Weight: 57 kg

DRUGS (5)
  1. CRESTOR [Concomitant]
     Indication: BLOOD CHOLESTEROL INCREASED
     Dosage: 20 MG, 1X/DAY
     Dates: start: 20110219
  2. CHAMPIX [Suspect]
     Dosage: 1 MG, 2X/DAY
     Route: 048
     Dates: start: 20110201
  3. DIAZEPAM [Concomitant]
     Indication: SLEEP DISORDER
     Dosage: UNK
  4. PAROXETINE [Concomitant]
     Indication: DEPRESSION
     Dosage: UNK
     Dates: start: 20040101
  5. CHAMPIX [Suspect]
     Indication: TOBACCO USER
     Dosage: UNK
     Route: 048
     Dates: start: 20110214

REACTIONS (4)
  - TREATMENT NONCOMPLIANCE [None]
  - DEPRESSION [None]
  - NAUSEA [None]
  - CONDITION AGGRAVATED [None]
